FAERS Safety Report 16573940 (Version 1)
Quarter: 2019Q3

REPORT INFORMATION
  Report Type: Spontaneous
  Country: DE (occurrence: DE)
  Receive Date: 20190715
  Receipt Date: 20190715
  Transmission Date: 20191004
  Serious: Yes (Other)
  Sender: FDA-Public Use
  Company Number: DE-MYLANLABS-2019M1066170

PATIENT
  Sex: Female

DRUGS (2)
  1. VALSARTAN DURA [Suspect]
     Active Substance: VALSARTAN
     Indication: PRODUCT USED FOR UNKNOWN INDICATION
     Dosage: 160 MILLIGRAM, QD
     Dates: start: 201610
  2. VALSARTAN DURA [Suspect]
     Active Substance: VALSARTAN
     Dosage: 240 MILLIGRAM, QD (1 IN THE MORNING AND 1/2 IN THE EVENING)
     Dates: end: 2018

REACTIONS (2)
  - Mental impairment [Not Recovered/Not Resolved]
  - Impaired quality of life [Not Recovered/Not Resolved]
